FAERS Safety Report 23106147 (Version 1)
Quarter: 2023Q4

REPORT INFORMATION
  Report Type: Spontaneous
  Country: US (occurrence: US)
  Receive Date: 20231025
  Receipt Date: 20231025
  Transmission Date: 20240109
  Serious: Yes (Hospitalization)
  Sender: FDA-Public Use
  Company Number: US-IGSA-BIG0026198

PATIENT
  Age: 30 Year
  Sex: Male

DRUGS (2)
  1. RABIES IMMUNE GLOBULIN (HUMAN) [Suspect]
     Active Substance: RABIES IMMUNE GLOBULIN (HUMAN)
     Indication: Exposure to communicable disease
     Dosage: UNK UNKNOWN, UNKNOWN
     Route: 065
  2. IMOVAX [Suspect]
     Active Substance: RABIES VACCINE\RABIES VIRUS STRAIN PM-1503-3M ANTIGEN (PROPIOLACTONE INACTIVATED)
     Indication: Exposure to communicable disease
     Dosage: UNK UNKNOWN, UNKNOWN
     Route: 065

REACTIONS (19)
  - Serum sickness [Recovering/Resolving]
  - Pyrexia [Recovering/Resolving]
  - Myalgia [Recovering/Resolving]
  - Chills [Recovering/Resolving]
  - Jaundice [Recovering/Resolving]
  - Rash macular [Recovering/Resolving]
  - Hepatitis cholestatic [Recovering/Resolving]
  - Chromaturia [Recovering/Resolving]
  - Faeces discoloured [Recovering/Resolving]
  - Ocular icterus [Recovering/Resolving]
  - Hepatosplenomegaly [Recovering/Resolving]
  - Complement factor C3 increased [Recovering/Resolving]
  - Complement factor C4 increased [Recovering/Resolving]
  - Lymphadenopathy [Recovering/Resolving]
  - Biliary tract disorder [Recovering/Resolving]
  - Hypertransaminasaemia [Recovering/Resolving]
  - Hyperbilirubinaemia [Recovering/Resolving]
  - Cholelithiasis [Recovering/Resolving]
  - Headache [Recovering/Resolving]
